FAERS Safety Report 8016216-1 (Version None)
Quarter: 2011Q4

REPORT INFORMATION
  Report Type: 
  Country: None (occurrence: None)
  Receive Date: 20111227
  Receipt Date: 20111219
  Transmission Date: 20120403
  Serious: Yes (Hospitalization)
  Sender: FDA-Public Use
  Company Number: DSU-2011-09458

PATIENT
  Age: 81 Year
  Sex: Female
  Weight: 77.1115 kg

DRUGS (3)
  1. AZOR [Suspect]
     Indication: HYPERTENSION
     Dosage: 5/20 MG DAILY (QD), PER ORAL
     Route: 048
     Dates: start: 20070101, end: 20111101
  2. AMLODIPINE (AMLODIPINE) (5 MILILGRAM) (AMLODIPINE) [Concomitant]
  3. HYDROCHLOROTHIAZIDE (HYDROCHLOROTHIAZIDE) (25 MILLIGRAM) (HYDROCHLOROT [Concomitant]

REACTIONS (5)
  - STENT PLACEMENT [None]
  - PROTEIN URINE PRESENT [None]
  - BLOOD POTASSIUM INCREASED [None]
  - RENAL DISORDER [None]
  - HAEMORRHAGE [None]
